FAERS Safety Report 18053938 (Version 1)
Quarter: 2020Q3

REPORT INFORMATION
  Report Type: Spontaneous
  Country: CN (occurrence: CN)
  Receive Date: 20200722
  Receipt Date: 20200722
  Transmission Date: 20201103
  Serious: Yes (Disabling, Other)
  Sender: FDA-Public Use
  Company Number: CN-009507513-2007CHN005563

PATIENT
  Age: 75 Year
  Sex: Male
  Weight: 50 kg

DRUGS (2)
  1. VORICONAZOLE. [Concomitant]
     Active Substance: VORICONAZOLE
     Indication: ANTIFUNGAL TREATMENT
     Dosage: 200 MILLIGRAM, BID, IVGTT
     Route: 042
     Dates: start: 20200616, end: 20200627
  2. TIENAM [Suspect]
     Active Substance: CILASTATIN SODIUM\IMIPENEM
     Indication: ANTI-INFECTIVE THERAPY
     Dosage: 500 MILLIGRAM, Q6H, IVGTT
     Route: 042
     Dates: start: 20200616, end: 20200627

REACTIONS (2)
  - Epilepsy [Recovering/Resolving]
  - Expired product administered [Unknown]

NARRATIVE: CASE EVENT DATE: 20200616
